FAERS Safety Report 8485257 (Version 2)
Quarter: 2013Q2

REPORT INFORMATION
  Report Type: Spontaneous
  Country: US (occurrence: US)
  Receive Date: 20120330
  Receipt Date: 20130403
  Transmission Date: 20140414
  Serious: Yes (Death, Hospitalization)
  Sender: FDA-Public Use
  Company Number: US-GLAXOSMITHKLINE-A0910009A

PATIENT
  Age: 68 Year
  Sex: Male
  Weight: 92.3 kg

DRUGS (6)
  1. AVANDIA [Suspect]
     Indication: TYPE 2 DIABETES MELLITUS
     Dosage: 8MG PER DAY
     Route: 048
     Dates: end: 200709
  2. PRILOSEC [Concomitant]
  3. LISINOPRIL [Concomitant]
  4. METOPROLOL [Concomitant]
  5. METFORMIN [Concomitant]
  6. ZOCOR [Concomitant]

REACTIONS (2)
  - Myocardial infarction [Fatal]
  - Cardiac failure congestive [Unknown]
